FAERS Safety Report 5935885-0 (Version None)
Quarter: 2008Q4

REPORT INFORMATION
  Report Type: 
  Country: None (occurrence: None)
  Receive Date: 20081030
  Receipt Date: 20081015
  Transmission Date: 20090506
  Serious: Yes (Hospitalization, Other)
  Sender: FDA-Public Use
  Company Number: FR-GENENTECH-270484

PATIENT
  Age: 24 Year

DRUGS (8)
  1. MABTHERA [Suspect]
     Indication: HEART TRANSPLANT REJECTION
     Dosage: 375 MG/M2, 4/MONTH
     Route: 065
  2. CYCLOSPORINE [Suspect]
     Indication: HEART TRANSPLANT REJECTION
     Dosage: 250 MG, UNK
     Route: 065
  3. MYCOPHENOLATE MOFETIL [Suspect]
     Indication: HEART TRANSPLANT REJECTION
     Dosage: UNK
     Route: 065
  4. PLASMAPHERESIS [Concomitant]
     Indication: HEART TRANSPLANT REJECTION
  5. HYDROXYZINE [Concomitant]
     Indication: PREMEDICATION
  6. ACETAMINOPHEN [Concomitant]
     Indication: PREMEDICATION
  7. METHYLPREDNISOLONE 16MG TAB [Concomitant]
     Indication: PREMEDICATION
  8. HYDROCORTISONE [Concomitant]
     Indication: PREMEDICATION

REACTIONS (2)
  - DIASTOLIC DYSFUNCTION [None]
  - EJECTION FRACTION DECREASED [None]
